FAERS Safety Report 4283155-1 (Version None)
Quarter: 2004Q1

REPORT INFORMATION
  Report Type: 
  Country: None (occurrence: None)
  Receive Date: 20040129
  Receipt Date: 20040121
  Transmission Date: 20041129
  Serious: Yes (Hospitalization)
  Sender: FDA-Public Use
  Company Number: 2004UW01043

PATIENT
  Age: 64 Year
  Sex: Female
  Weight: 50 kg

DRUGS (5)
  1. TENORMIN [Suspect]
     Indication: HYPERTENSION
     Dates: start: 20031101
  2. ARANESP [Suspect]
     Indication: RENAL FAILURE CHRONIC
     Dosage: 40 UG Q2WK IV
     Route: 042
     Dates: start: 20031127, end: 20031128
  3. DILTIAZEM HYDROCHLORIDE [Suspect]
     Indication: HYPERTENSION
     Dates: start: 20031101
  4. CALCIUM CARBONATE [Concomitant]
  5. CALCITRIOL [Concomitant]

REACTIONS (6)
  - ANOREXIA [None]
  - DEHYDRATION [None]
  - EMOTIONAL DISTRESS [None]
  - RASH ERYTHEMATOUS [None]
  - RASH MACULAR [None]
  - RASH PRURITIC [None]
